FAERS Safety Report 20135952 (Version 2)
Quarter: 2021Q4

REPORT INFORMATION
  Report Type: Spontaneous
  Country: CA (occurrence: CA)
  Receive Date: 20211201
  Receipt Date: 20211221
  Transmission Date: 20220304
  Serious: Yes (Death, Life-Threatening, Hospitalization)
  Sender: FDA-Public Use
  Company Number: CA-PFIZER INC-202100951177

PATIENT
  Age: 71 Year
  Sex: Female
  Weight: 96 kg

DRUGS (2)
  1. RUXIENCE [Suspect]
     Active Substance: RITUXIMAB-PVVR
     Indication: Rheumatoid arthritis
     Dosage: 1000MG DAY 1 AND DAY 15
     Route: 042
     Dates: start: 20210720
  2. RUXIENCE [Suspect]
     Active Substance: RITUXIMAB-PVVR
     Dosage: 1000 DAY 1 AND DAY 15
     Route: 042
     Dates: start: 20210805

REACTIONS (5)
  - COVID-19 [Fatal]
  - Pneumonia [Fatal]
  - Respiratory failure [Fatal]
  - Off label use [Unknown]
  - Intentional product use issue [Unknown]
